FAERS Safety Report 20119768 (Version 5)
Quarter: 2022Q1

REPORT INFORMATION
  Report Type: Report from Study
  Country: MX (occurrence: MX)
  Receive Date: 20211126
  Receipt Date: 20220216
  Transmission Date: 20220423
  Serious: Yes (Life-Threatening, Other)
  Sender: FDA-Public Use
  Company Number: MX-NOVARTISPH-NVSC2021MX051355

PATIENT
  Age: 76 Year
  Sex: Female
  Weight: 74 kg

DRUGS (14)
  1. ENTRESTO [Suspect]
     Active Substance: SACUBITRIL\VALSARTAN
     Indication: Cardiac disorder
     Dosage: 0.5 DF (50 MG), BID (DAILY IN THE MORNING AND IN THE AFTERNOON)
     Route: 048
     Dates: start: 202001
  2. ENTRESTO [Suspect]
     Active Substance: SACUBITRIL\VALSARTAN
     Indication: Cardiac failure
     Dosage: 0.5 DOSAGE FORM (50 MG), BID
     Route: 048
     Dates: start: 202008
  3. ENTRESTO [Suspect]
     Active Substance: SACUBITRIL\VALSARTAN
     Dosage: 0.5 DF (100 MG), BID (DAILY/IN THE MORNING AND IN THE NIGHT)
     Route: 048
  4. TELMISARTAN [Suspect]
     Active Substance: TELMISARTAN
     Indication: Blood pressure abnormal
     Dosage: 0.5 DOSAGE FORM, PRN
     Route: 048
  5. PROPAFENONE [Concomitant]
     Active Substance: PROPAFENONE
     Indication: Arrhythmia
     Dosage: 1 DOSAGE FORM, BID
     Route: 048
  6. RIVAROXABAN [Concomitant]
     Active Substance: RIVAROXABAN
     Indication: Anticoagulant therapy
     Dosage: 1 DOSAGE FORM, BID
     Route: 048
  7. METOPROLOL [Concomitant]
     Active Substance: METOPROLOL
     Indication: Blood pressure abnormal
     Dosage: 0.5 DOSAGE FORM, PRN
     Route: 048
  8. METFORMIN [Concomitant]
     Active Substance: METFORMIN HYDROCHLORIDE
     Indication: Hepatic steatosis
     Dosage: 0.5 DOSAGE FORM, BID
     Route: 048
  9. VITAMIN E [Concomitant]
     Active Substance: .ALPHA.-TOCOPHEROL
     Indication: Hepatic steatosis
     Dosage: 1 DOSAGE FORM, BID
     Route: 048
  10. GLYBURIDE [Concomitant]
     Active Substance: GLYBURIDE
     Indication: Diabetes mellitus
     Dosage: 0.5 DOSAGE FORM, PRN
     Route: 048
  11. VITAMIN C [Concomitant]
     Active Substance: ASCORBIC ACID
     Indication: Product used for unknown indication
     Dosage: 2 DOSAGE FORM, UNKNOWN
     Route: 065
  12. VITAMIN D [Concomitant]
     Active Substance: VITAMIN D NOS
     Indication: Product used for unknown indication
     Dosage: UNK (4000 UNITS), QD
     Route: 065
  13. TRANSFER FACTOR [Concomitant]
     Indication: Product used for unknown indication
     Dosage: UNK
     Route: 065
  14. HYDROCHLOROTHIAZIDE [Concomitant]
     Active Substance: HYDROCHLOROTHIAZIDE
     Indication: Product used for unknown indication
     Dosage: 1.5 DOSAGE FORM, BID (1 TABLET IN THE MORNING AND ? TABLET AT NOON
     Route: 065

REACTIONS (23)
  - Hypertensive crisis [Recovered/Resolved]
  - Nephrolithiasis [Not Recovered/Not Resolved]
  - Inflammation [Not Recovered/Not Resolved]
  - Renal pain [Not Recovered/Not Resolved]
  - Pulmonary arterial pressure abnormal [Unknown]
  - Headache [Recovered/Resolved]
  - Haematoma [Recovering/Resolving]
  - Gait disturbance [Unknown]
  - Fall [Recovering/Resolving]
  - Injury [Unknown]
  - Eye allergy [Recovering/Resolving]
  - Eye swelling [Recovering/Resolving]
  - Decreased appetite [Not Recovered/Not Resolved]
  - Weight decreased [Not Recovered/Not Resolved]
  - Pyrexia [Not Recovered/Not Resolved]
  - Body temperature abnormal [Not Recovered/Not Resolved]
  - Hypersensitivity [Unknown]
  - COVID-19 [Unknown]
  - Discomfort [Unknown]
  - Nasal congestion [Unknown]
  - Inappropriate schedule of product administration [Unknown]
  - Wrong technique in product usage process [Not Recovered/Not Resolved]
  - Product use in unapproved indication [Unknown]

NARRATIVE: CASE EVENT DATE: 20200101
